FAERS Safety Report 12727421 (Version 1)
Quarter: 2016Q3

REPORT INFORMATION
  Report Type: Spontaneous
  Country: JP (occurrence: JP)
  Receive Date: 20160909
  Receipt Date: 20160909
  Transmission Date: 20161109
  Serious: Yes (Other)
  Sender: FDA-Public Use
  Company Number: JP-AMGEN-JPNSP2016119967

PATIENT
  Age: 75 Year
  Sex: Female

DRUGS (2)
  1. PRALIA [Suspect]
     Active Substance: DENOSUMAB
     Indication: PRODUCT USED FOR UNKNOWN INDICATION
     Dosage: 60 MG, UNK
     Route: 065
     Dates: start: 201401
  2. PRALIA [Suspect]
     Active Substance: DENOSUMAB
     Dosage: 60 MG, UNK
     Route: 065
     Dates: start: 201606

REACTIONS (1)
  - Osteonecrosis of jaw [Not Recovered/Not Resolved]
